FAERS Safety Report 4990684-1 (Version None)
Quarter: 2006Q2

REPORT INFORMATION
  Report Type: 
  Country: None (occurrence: None)
  Receive Date: 20060427
  Receipt Date: 20060418
  Transmission Date: 20061013
  Serious: Yes (Other)
  Sender: FDA-Public Use
  Company Number: HQWYE868619APR06

PATIENT
  Age: 50 Year
  Sex: Male

DRUGS (1)
  1. CORDARONE [Suspect]
     Indication: VENTRICULAR TACHYCARDIA
     Dosage: 150 MG INFUSION, INTRAVENOUS
     Route: 042

REACTIONS (4)
  - DIZZINESS [None]
  - DRUG INEFFECTIVE [None]
  - HEART RATE INCREASED [None]
  - HYPERHIDROSIS [None]
